FAERS Safety Report 15486194 (Version 1)
Quarter: 2018Q4

REPORT INFORMATION
  Report Type: Report from Study
  Country: CA (occurrence: CA)
  Receive Date: 20181011
  Receipt Date: 20181011
  Transmission Date: 20190205
  Serious: Yes (Other)
  Sender: FDA-Public Use
  Company Number: CA-CPL-000710

PATIENT
  Age: 84 Year
  Sex: Male

DRUGS (3)
  1. QUETIAPINE. [Suspect]
     Active Substance: QUETIAPINE
     Indication: GOUT
     Dosage: DOSE INCREASED 7 DAYS AGO
  2. DONEPEZIL. [Suspect]
     Active Substance: DONEPEZIL
     Indication: GOUT
  3. QUETIAPINE/QUETIAPINE FUMARATE [Suspect]
     Active Substance: QUETIAPINE FUMARATE
     Indication: GOUT

REACTIONS (5)
  - Fall [Unknown]
  - Sedation complication [Unknown]
  - Somnolence [Unknown]
  - Unresponsive to stimuli [Unknown]
  - Muscle rigidity [Unknown]
